FAERS Safety Report 5257961-0 (Version None)
Quarter: 2007Q1

REPORT INFORMATION
  Report Type: 
  Country: None (occurrence: None)
  Receive Date: 20070307
  Receipt Date: 20061114
  Transmission Date: 20070707
  Serious: No
  Sender: FDA-Public Use
  Company Number: US-GLAXOSMITHKLINE-A0627493A

PATIENT
  Sex: Male

DRUGS (8)
  1. REQUIP [Suspect]
     Indication: RESTLESS LEGS SYNDROME
     Dosage: 1MG PER DAY
     Route: 048
     Dates: start: 20060901
  2. ANAPRIL [Concomitant]
  3. CLONAZEPAM [Concomitant]
  4. RELPAX [Concomitant]
  5. ADVAIR DISKUS 100/50 [Concomitant]
  6. UNKNOWN MEDICATION [Concomitant]
  7. TRAMADOL HCL [Concomitant]
  8. HYDROXYZINE [Concomitant]

REACTIONS (5)
  - CHEST PAIN [None]
  - HEADACHE [None]
  - HOT FLUSH [None]
  - SOMNOLENCE [None]
  - VISION BLURRED [None]
